FAERS Safety Report 11469987 (Version 2)
Quarter: 2015Q3

REPORT INFORMATION
  Report Type: Spontaneous
  Country: US (occurrence: US)
  Receive Date: 20150903
  Receipt Date: 20150903
  Transmission Date: 20151125
  Serious: No
  Sender: FDA-Public Use
  Company Number: US-ELI_LILLY_AND_COMPANY-US201111000494

PATIENT
  Sex: Female

DRUGS (4)
  1. CYMBALTA [Suspect]
     Active Substance: DULOXETINE HYDROCHLORIDE
     Dosage: 30 MG, QD
  2. CYMBALTA [Suspect]
     Active Substance: DULOXETINE HYDROCHLORIDE
     Dosage: 30 MG, OTHER
  3. CYMBALTA [Suspect]
     Active Substance: DULOXETINE HYDROCHLORIDE
     Indication: GENERALISED ANXIETY DISORDER
     Dosage: 30 MG, PRN
  4. CYMBALTA [Suspect]
     Active Substance: DULOXETINE HYDROCHLORIDE
     Dosage: 30 MG, QOD

REACTIONS (18)
  - Ear discomfort [Unknown]
  - Nausea [Unknown]
  - Drug dose omission [Unknown]
  - Tinnitus [Unknown]
  - Dizziness [Unknown]
  - Drug withdrawal syndrome [Unknown]
  - Aptyalism [Unknown]
  - Eye disorder [Unknown]
  - Crying [Unknown]
  - Balance disorder [Unknown]
  - Dental caries [Unknown]
  - Vulvovaginal dryness [Unknown]
  - Intentional product misuse [Unknown]
  - Tachyphrenia [Unknown]
  - Drug ineffective [Unknown]
  - Blood pressure increased [Unknown]
  - Irritability [Unknown]
  - Insomnia [Unknown]
